FAERS Safety Report 13513967 (Version 8)
Quarter: 2020Q3

REPORT INFORMATION
  Report Type: Spontaneous
  Country: US (occurrence: US)
  Receive Date: 20170504
  Receipt Date: 20200917
  Transmission Date: 20201102
  Serious: Yes (Other)
  Sender: FDA-Public Use
  Company Number: US-PFIZER INC-2017192886

PATIENT
  Age: 46 Year
  Sex: Female

DRUGS (5)
  1. SUTENT [Suspect]
     Active Substance: SUNITINIB MALATE
     Dosage: 37.5 MG, 1X/DAY
     Route: 048
     Dates: start: 20170502
  2. SUTENT [Suspect]
     Active Substance: SUNITINIB MALATE
     Dosage: 37.5 MG, 1X/DAY
     Route: 048
     Dates: start: 20170405, end: 2017
  3. SUTENT [Suspect]
     Active Substance: SUNITINIB MALATE
     Indication: LUNG CARCINOMA CELL TYPE UNSPECIFIED STAGE IV
     Dosage: 25 MG, DAILY
     Route: 048
     Dates: start: 20160901
  4. SUTENT [Suspect]
     Active Substance: SUNITINIB MALATE
     Dosage: 25 MG, CYCLIC (21 DAYS, THEN 7 DAYS OFF)
     Route: 048
     Dates: start: 2017, end: 2017
  5. SUTENT [Suspect]
     Active Substance: SUNITINIB MALATE
     Dosage: 37.5 MG, CYCLIC (DAILY FOR 21 DAYS)
     Route: 048

REACTIONS (7)
  - Fluid retention [Unknown]
  - Product use in unapproved indication [Unknown]
  - Nausea [Recovered/Resolved]
  - Muscle spasms [Unknown]
  - Vomiting [Unknown]
  - Off label use [Unknown]
  - Diarrhoea [Unknown]

NARRATIVE: CASE EVENT DATE: 20160901
